FAERS Safety Report 6073352-7 (Version None)
Quarter: 2009Q1

REPORT INFORMATION
  Report Type: 
  Country: None (occurrence: None)
  Receive Date: 20090211
  Receipt Date: 20090204
  Transmission Date: 20090719
  Serious: Yes (Hospitalization, Other)
  Sender: FDA-Public Use
  Company Number: PHNU2007DE04273

PATIENT
  Sex: Female
  Weight: 53 kg

DRUGS (10)
  1. ACLASTA [Suspect]
     Indication: OSTEOPOROSIS
     Dosage: 5 MG, ONCE YEARLY
     Route: 042
     Dates: start: 20071218, end: 20071218
  2. ACLASTA [Suspect]
     Dosage: 15 ML/MIN
     Route: 042
     Dates: start: 20080401, end: 20080401
  3. POLYGAM S/D [Concomitant]
     Indication: CHRONIC LYMPHOCYTIC LEUKAEMIA
     Route: 065
  4. BLOPRESS [Concomitant]
     Dosage: 2 - 4 MG/DAY
     Route: 048
     Dates: end: 20071201
  5. BLOPRESS [Concomitant]
     Dosage: 8 - 12 MG/DAY
     Route: 048
     Dates: start: 20071201
  6. JODID [Concomitant]
     Dosage: 1 DF, QD
     Route: 048
  7. COLECALCIFEROL [Concomitant]
     Dosage: 1000 IU/DAY
     Route: 048
  8. INEGY [Concomitant]
     Route: 048
  9. ALLOPURINOL [Concomitant]
     Dosage: 100 MG/DAY
     Dates: start: 20080403
  10. ARANESP [Concomitant]
     Dosage: 150 UG 4 TIMES WEEKLY

REACTIONS (12)
  - BLOOD CREATININE INCREASED [None]
  - BLOOD UREA INCREASED [None]
  - BLOOD URIC ACID INCREASED [None]
  - CONTRAINDICATION TO MEDICAL TREATMENT [None]
  - CREATININE RENAL CLEARANCE DECREASED [None]
  - HAEMATURIA [None]
  - HYPERTENSION [None]
  - HYPONATRAEMIA [None]
  - PROTEINURIA [None]
  - RENAL FAILURE [None]
  - VIRAL INFECTION [None]
  - VOMITING [None]
